FAERS Safety Report 7471722-3 (Version None)
Quarter: 2011Q2

REPORT INFORMATION
  Report Type: 
  Country: None (occurrence: None)
  Receive Date: 20110502
  Receipt Date: 20110420
  Transmission Date: 20111010
  Serious: Yes (Other)
  Sender: FDA-Public Use
  Company Number: 1000020547

PATIENT
  Age: 30 Year
  Sex: Male

DRUGS (1)
  1. NEBIVOLOL HCL [Suspect]
     Dosage: 2.5 MG (2.5 MG, 1 IN 1 D, 5 MG (5 MG, 1 IN 1 D)

REACTIONS (4)
  - NAUSEA [None]
  - BLOOD PRESSURE DECREASED [None]
  - LOSS OF CONSCIOUSNESS [None]
  - BRADYCARDIA [None]
